FAERS Safety Report 20877633 (Version 1)
Quarter: 2022Q2

REPORT INFORMATION
  Report Type: Spontaneous
  Country: US (occurrence: None)
  Receive Date: 20220525
  Receipt Date: 20220525
  Transmission Date: 20220721
  Serious: Yes (Other)
  Sender: FDA-Public Use
  Company Number: None

PATIENT
  Age: 66 Year
  Sex: Male
  Weight: 76.5 kg

DRUGS (8)
  1. PAXLOVID [Suspect]
     Active Substance: NIRMATRELVIR\RITONAVIR
     Indication: COVID-19
     Dates: start: 20220505, end: 20220510
  2. ATORVASTATIN [Concomitant]
     Active Substance: ATORVASTATIN
  3. METFORMIN [Concomitant]
     Active Substance: METFORMIN HYDROCHLORIDE
  4. PERINDOPRIL [Concomitant]
     Active Substance: PERINDOPRIL
  5. CLOPIDOGREL [Concomitant]
     Active Substance: CLOPIDOGREL BISULFATE
  6. CARVEDILOL [Concomitant]
     Active Substance: CARVEDILOL
  7. ASPIRIN [Concomitant]
     Active Substance: ASPIRIN
  8. FINASTERIDE [Concomitant]
     Active Substance: FINASTERIDE

REACTIONS (3)
  - COVID-19 [None]
  - Symptom recurrence [None]
  - SARS-CoV-2 test positive [None]

NARRATIVE: CASE EVENT DATE: 20220520
